FAERS Safety Report 9639138 (Version 1)
Quarter: 2013Q4

REPORT INFORMATION
  Report Type: Report from Study
  Country: GB (occurrence: GB)
  Receive Date: 20131022
  Receipt Date: 20131022
  Transmission Date: 20140711
  Serious: Yes (Congenital Anomaly, Other)
  Sender: FDA-Public Use
  Company Number: GB-IPSEN BIOPHARMACEUTICALS, INC.-2013-4497

PATIENT
  Age: 16 Year
  Sex: Male

DRUGS (6)
  1. INCRELEX [Suspect]
     Indication: INSULIN-LIKE GROWTH FACTOR DECREASED
     Route: 058
     Dates: end: 20131009
  2. INCRELEX [Suspect]
     Route: 058
     Dates: start: 20101103, end: 20101124
  3. INCRELEX [Suspect]
     Route: 058
     Dates: start: 20101125, end: 20101207
  4. INCRELEX [Suspect]
     Route: 058
     Dates: start: 20101208, end: 20110612
  5. INCRELEX [Suspect]
     Route: 058
     Dates: start: 20110613, end: 20130624
  6. INCRELEX [Suspect]
     Route: 058
     Dates: start: 20130624

REACTIONS (3)
  - Optic discs blurred [Recovered/Resolved]
  - Optic nerve disorder [Recovered/Resolved]
  - Headache [Recovered/Resolved]
